FAERS Safety Report 17525515 (Version 1)
Quarter: 2020Q1

REPORT INFORMATION
  Report Type: Report from Study
  Country: GB (occurrence: GB)
  Receive Date: 20200311
  Receipt Date: 20200311
  Transmission Date: 20200409
  Serious: Yes (Hospitalization)
  Sender: FDA-Public Use
  Company Number: GB-ROCHE-2559807

PATIENT
  Age: 64 Year
  Sex: Female

DRUGS (97)
  1. OXYCODONE [Concomitant]
     Active Substance: OXYCODONE
  2. AMLODIPINE [Concomitant]
     Active Substance: AMLODIPINE BESYLATE
     Route: 048
     Dates: start: 20091014, end: 20191106
  3. FOLIC ACID. [Concomitant]
     Active Substance: FOLIC ACID
     Route: 048
     Dates: start: 20030207
  4. LEVOFLOXACIN. [Concomitant]
     Active Substance: LEVOFLOXACIN
     Route: 042
     Dates: start: 20180225, end: 20180228
  5. BENZYDAMINE [Concomitant]
     Active Substance: BENZYDAMINE
     Route: 065
     Dates: start: 20180414
  6. METRONIDAZOLE. [Concomitant]
     Active Substance: METRONIDAZOLE
     Route: 058
     Dates: start: 20181220, end: 20190107
  7. CYCLIZINE [Concomitant]
     Active Substance: CYCLIZINE
     Route: 065
     Dates: start: 20181102
  8. CHIROCAINE [LEVOBUPIVACAINE] [Concomitant]
     Route: 065
     Dates: start: 20181220, end: 20181220
  9. PROPOFOL. [Concomitant]
     Active Substance: PROPOFOL
  10. DOXYCYCLINE. [Concomitant]
     Active Substance: DOXYCYCLINE
  11. SANDO K [POTASSIUM BICARBONATE;POTASSIUM CHLORIDE] [Concomitant]
     Active Substance: POTASSIUM BICARBONATE\POTASSIUM CHLORIDE
     Route: 048
     Dates: start: 20181216, end: 20181218
  12. GENTAMYCIN [GENTAMICIN] [Concomitant]
     Active Substance: GENTAMICIN
     Route: 042
     Dates: start: 20181119, end: 20181119
  13. GENTAMYCIN [GENTAMICIN] [Concomitant]
     Active Substance: GENTAMICIN
     Route: 042
     Dates: start: 20190528, end: 20190528
  14. SILVER NITRATE. [Concomitant]
     Active Substance: SILVER NITRATE
     Route: 061
     Dates: start: 20190522, end: 20190522
  15. CO-AMOXICLAV [AMOXICILLIN;CLAVULANATE POTASSIUM] [Concomitant]
     Active Substance: AMOXICILLIN\CLAVULANATE POTASSIUM
  16. CIPROFLOXACIN. [Concomitant]
     Active Substance: CIPROFLOXACIN
  17. CODEINE PHOSPHATE [Concomitant]
     Active Substance: CODEINE PHOSPHATE
  18. DOXAZOSIN [Concomitant]
     Active Substance: DOXAZOSIN MESYLATE
     Route: 048
     Dates: start: 20131217
  19. HYDROXOCOBALAMIN [Concomitant]
     Active Substance: HYDROXOCOBALAMIN
     Route: 030
     Dates: start: 20020115
  20. PARACETAMOL [Concomitant]
     Active Substance: ACETAMINOPHEN
     Route: 048
     Dates: start: 20180225, end: 20180301
  21. AQUACEL [Concomitant]
     Active Substance: CARBOXYMETHYLCELLULOSE SODIUM
     Route: 061
     Dates: start: 20181220, end: 20190116
  22. VANCOMYCIN [Concomitant]
     Active Substance: VANCOMYCIN
     Route: 042
     Dates: start: 20181120, end: 20181122
  23. CLEXANE [Concomitant]
     Active Substance: ENOXAPARIN SODIUM
     Route: 058
     Dates: start: 20190526, end: 20190527
  24. FEXOFENADINE [Concomitant]
     Active Substance: FEXOFENADINE HYDROCHLORIDE
     Route: 048
     Dates: start: 20190403, end: 20190503
  25. TERBUTALINE [Concomitant]
     Active Substance: TERBUTALINE
     Route: 065
     Dates: start: 20030108
  26. DEXAMETHASONE. [Concomitant]
     Active Substance: DEXAMETHASONE
     Route: 048
     Dates: start: 20180916, end: 20181004
  27. DEXAMETHASONE. [Concomitant]
     Active Substance: DEXAMETHASONE
     Route: 048
     Dates: start: 20181023, end: 20181030
  28. METOCLOPRAMIDE. [Concomitant]
     Active Substance: METOCLOPRAMIDE
     Route: 048
     Dates: start: 20180518
  29. CODEINE [Concomitant]
     Active Substance: CODEINE
     Route: 048
     Dates: start: 20180228, end: 20180301
  30. METRONIDAZOLE. [Concomitant]
     Active Substance: METRONIDAZOLE
     Route: 048
     Dates: start: 20181119, end: 20181121
  31. DUODERM [NYSTATIN;TOLNAFTATE] [Concomitant]
     Route: 061
     Dates: start: 20181220, end: 20190116
  32. ONDANSETRON [Concomitant]
     Active Substance: ONDANSETRON
     Route: 048
     Dates: start: 20181220, end: 20181224
  33. VANCOMYCIN [Concomitant]
     Active Substance: VANCOMYCIN
     Route: 042
     Dates: start: 20190526, end: 20190526
  34. TEICOPLANIN [Concomitant]
     Active Substance: TEICOPLANIN
     Route: 042
     Dates: start: 20181220, end: 20181224
  35. SILVER NITRATE. [Concomitant]
     Active Substance: SILVER NITRATE
     Route: 061
     Dates: start: 20190527, end: 20190527
  36. SILVER NITRATE. [Concomitant]
     Active Substance: SILVER NITRATE
     Route: 061
     Dates: start: 20180329, end: 20180329
  37. TRIMETHOPRIM. [Concomitant]
     Active Substance: TRIMETHOPRIM
     Route: 048
     Dates: start: 20190813, end: 20190815
  38. AMOXICILLIN. [Concomitant]
     Active Substance: AMOXICILLIN
     Route: 042
     Dates: start: 20190911, end: 20190915
  39. SANDO K [POTASSIUM BICARBONATE;POTASSIUM CHLORIDE] [Concomitant]
     Active Substance: POTASSIUM BICARBONATE\POTASSIUM CHLORIDE
  40. CHLORPHENAMINE [Concomitant]
     Active Substance: CHLORPHENIRAMINE MALEATE
  41. FEXOFENADINE [Concomitant]
     Active Substance: FEXOFENADINE HYDROCHLORIDE
  42. TRASTUZUMAB EMTANSINE [Suspect]
     Active Substance: ADO-TRASTUZUMAB EMTANSINE
     Indication: BREAST CANCER
     Route: 042
     Dates: start: 20181019, end: 20191205
  43. ADCAL D3 [Concomitant]
     Active Substance: CALCIUM CARBONATE\CHOLECALCIFEROL
     Route: 048
     Dates: start: 20140127
  44. CHLORPHENAMINE [Concomitant]
     Active Substance: CHLORPHENIRAMINE MALEATE
     Route: 042
     Dates: start: 20180518
  45. PIRITON [Concomitant]
     Active Substance: CHLORPHENIRAMINE MALEATE
     Route: 048
     Dates: start: 20180125
  46. DOXYCYCLINE. [Concomitant]
     Active Substance: DOXYCYCLINE
     Route: 048
     Dates: start: 20181113, end: 20181113
  47. VANCOMYCIN [Concomitant]
     Active Substance: VANCOMYCIN
     Route: 042
     Dates: start: 20190527
  48. GENTAMYCIN [GENTAMICIN] [Concomitant]
     Active Substance: GENTAMICIN
     Route: 042
     Dates: start: 20190913, end: 20190913
  49. SILVER NITRATE. [Concomitant]
     Active Substance: SILVER NITRATE
     Route: 042
     Dates: start: 20190510, end: 20190510
  50. CLARITHROMYCIN. [Concomitant]
     Active Substance: CLARITHROMYCIN
  51. ONDANSETRON [Concomitant]
     Active Substance: ONDANSETRON
  52. TRASTUZUMAB. [Suspect]
     Active Substance: TRASTUZUMAB
     Indication: BREAST CANCER
     Route: 058
     Dates: start: 20180202, end: 20180827
  53. BENDROFLUMETHIAZIDE [Concomitant]
     Active Substance: BENDROFLUMETHIAZIDE
     Route: 048
     Dates: start: 20030114, end: 20190906
  54. QUININE SULPHATE [Concomitant]
     Active Substance: QUININE SULFATE
     Route: 048
     Dates: start: 20040219
  55. DEXAMETHASONE. [Concomitant]
     Active Substance: DEXAMETHASONE
     Route: 042
     Dates: start: 20180518
  56. DEXAMETHASONE. [Concomitant]
     Active Substance: DEXAMETHASONE
     Route: 042
     Dates: start: 20181220, end: 20181220
  57. COCODAMOL [Concomitant]
     Active Substance: ACETAMINOPHEN\CODEINE PHOSPHATE
     Route: 061
  58. VANCOMYCIN [Concomitant]
     Active Substance: VANCOMYCIN
     Route: 042
     Dates: start: 20181119, end: 20181119
  59. ENOXAPARIN [Concomitant]
     Active Substance: ENOXAPARIN
     Route: 058
     Dates: start: 20181220, end: 20190107
  60. TRANEXAMIC ACID. [Concomitant]
     Active Substance: TRANEXAMIC ACID
     Route: 042
     Dates: start: 20181220, end: 20181220
  61. SUGAMMADEX [Concomitant]
     Active Substance: SUGAMMADEX
  62. METRONIDAZOLE. [Concomitant]
     Active Substance: METRONIDAZOLE
     Route: 058
     Dates: start: 20190526, end: 2019
  63. FERROUS FUMARATE [Concomitant]
     Active Substance: FERROUS FUMARATE
     Route: 048
     Dates: start: 20190730
  64. METRONIDAZOLE. [Concomitant]
     Active Substance: METRONIDAZOLE
     Route: 048
     Dates: start: 20190911, end: 20190915
  65. DOXAZOSIN [Concomitant]
     Active Substance: DOXAZOSIN MESYLATE
  66. OMEPRAZOLE. [Concomitant]
     Active Substance: OMEPRAZOLE
     Route: 048
     Dates: start: 20040816, end: 20190906
  67. CLOTRIMAZOLE. [Concomitant]
     Active Substance: CLOTRIMAZOLE
     Route: 061
     Dates: start: 20180125
  68. PARACETAMOL [Concomitant]
     Active Substance: ACETAMINOPHEN
     Route: 048
     Dates: start: 20180916, end: 20181002
  69. OXYCODONE [Concomitant]
     Active Substance: OXYCODONE
     Route: 048
     Dates: start: 20180922, end: 20181002
  70. ZOLEDRONIC ACID [Concomitant]
     Active Substance: ZOLEDRONIC ACID
  71. GENTAMYCIN [GENTAMICIN] [Concomitant]
     Active Substance: GENTAMICIN
     Route: 042
     Dates: start: 20190526, end: 20190526
  72. RANITIDINE. [Concomitant]
     Active Substance: RANITIDINE
     Route: 065
     Dates: start: 20181123, end: 20181123
  73. OMEPRAZOLE. [Concomitant]
     Active Substance: OMEPRAZOLE
  74. TAXOL [Suspect]
     Active Substance: PACLITAXEL
     Indication: BREAST CANCER
     Route: 042
     Dates: start: 20180202, end: 20180518
  75. DEXAMETHASONE. [Concomitant]
     Active Substance: DEXAMETHASONE
     Route: 048
     Dates: start: 20181015, end: 20181022
  76. FLUCONAZOLE. [Concomitant]
     Active Substance: FLUCONAZOLE
     Route: 048
     Dates: start: 20180125, end: 20180128
  77. CETIRIZINE [Concomitant]
     Active Substance: CETIRIZINE HYDROCHLORIDE
     Route: 048
     Dates: start: 20080430, end: 20191119
  78. OXYGEN. [Concomitant]
     Active Substance: OXYGEN
     Route: 065
     Dates: start: 20181220, end: 20181220
  79. NACL [Concomitant]
     Active Substance: SODIUM CHLORIDE
  80. DOUBLEBASE [Concomitant]
     Active Substance: ISOPROPYL MYRISTATE\PARAFFIN
  81. SILVER NITRATE. [Concomitant]
     Active Substance: SILVER NITRATE
     Route: 061
     Dates: start: 20190730, end: 20190730
  82. EUMOVATE [Concomitant]
     Active Substance: CLOBETASONE BUTYRATE
  83. SANDO K [POTASSIUM BICARBONATE;POTASSIUM CHLORIDE] [Concomitant]
     Active Substance: POTASSIUM BICARBONATE\POTASSIUM CHLORIDE
  84. BENDROFLUMETHIAZIDE [Concomitant]
     Active Substance: BENDROFLUMETHIAZIDE
  85. FEMARA [Suspect]
     Active Substance: LETROZOLE
     Indication: BREAST CANCER
     Route: 048
     Dates: start: 20180119, end: 20180126
  86. FEMARA [Suspect]
     Active Substance: LETROZOLE
     Route: 048
     Dates: start: 20180525, end: 20181011
  87. RANITIDINE. [Concomitant]
     Active Substance: RANITIDINE
     Route: 042
     Dates: start: 20180202, end: 20180518
  88. FRUSEMIDE [FUROSEMIDE] [Concomitant]
     Active Substance: FUROSEMIDE
     Route: 042
     Dates: start: 20180225, end: 20180225
  89. CLEXANE [Concomitant]
     Active Substance: ENOXAPARIN SODIUM
     Route: 058
     Dates: start: 20180228
  90. PARACETAMOL [Concomitant]
     Active Substance: ACETAMINOPHEN
     Route: 042
     Dates: start: 20181220, end: 20181220
  91. OXYCODONE [Concomitant]
     Active Substance: OXYCODONE
     Route: 048
     Dates: start: 20180916, end: 20181002
  92. PLASMA [Concomitant]
     Active Substance: HUMAN PLASMA
     Route: 065
     Dates: start: 20181220, end: 20181220
  93. GENTAMYCIN [GENTAMICIN] [Concomitant]
     Active Substance: GENTAMICIN
     Route: 042
     Dates: start: 20190911, end: 20190911
  94. ENOXAPARIN [Concomitant]
     Active Substance: ENOXAPARIN
     Route: 058
     Dates: start: 20181119, end: 20181122
  95. TRANEXAMIC ACID. [Concomitant]
     Active Substance: TRANEXAMIC ACID
     Route: 048
     Dates: start: 20190804, end: 20190806
  96. METOCLOPRAMIDE. [Concomitant]
     Active Substance: METOCLOPRAMIDE
  97. METRONIDAZOLE. [Concomitant]
     Active Substance: METRONIDAZOLE

REACTIONS (1)
  - Gastrointestinal haemorrhage [Recovered/Resolved]

NARRATIVE: CASE EVENT DATE: 20200214
